FAERS Safety Report 5647261-9 (Version None)
Quarter: 2008Q1

REPORT INFORMATION
  Report Type: 
  Country: None (occurrence: None)
  Receive Date: 20080228
  Receipt Date: 20080214
  Transmission Date: 20080703
  Serious: Yes (Hospitalization)
  Sender: FDA-Public Use
  Company Number: 6040801

PATIENT
  Age: 88 Year
  Sex: Female

DRUGS (10)
  1. BISOPROLOL FUMARATE [Suspect]
     Indication: DRUG USE FOR UNKNOWN INDICATION
     Dosage: 2,5 MG (2, 5 MG, 1 D) ORAL
     Route: 048
  2. PREVISCAN                (FLUINDIONE) [Suspect]
     Indication: PULMONARY EMBOLISM
     Dosage: 1/2 TAB ADJUSTED ACCORDING TO INR (1 D) ORAL
     Route: 048
     Dates: start: 20030301, end: 20071216
  3. LOXEN                              (NICARDIPINE HYDROCHLORIDE) [Suspect]
     Indication: DRUG USE FOR UNKNOWN INDICATION
     Dosage: 100 MG (100 MG, 1 D) ORAL
     Route: 048
     Dates: end: 20071216
  4. EUPRESSYL                  (URAPIDIL) [Suspect]
     Indication: DRUG USE FOR UNKNOWN INDICATION
     Dosage: 120 MG (120 MG, 1 D) ORAL
     Route: 048
     Dates: end: 20071216
  5. PERINDOPRIL ERBUMINE [Suspect]
     Indication: DRUG USE FOR UNKNOWN INDICATION
     Dosage: 4 MG (4 MG, 1 D) ORAL
     Route: 048
  6. LASIX [Suspect]
     Indication: DRUG USE FOR UNKNOWN INDICATION
     Dosage: 40 MG (40 MG, 1 D) ORAL
     Route: 048
  7. ZOLPIDEM TARTRATE [Suspect]
     Indication: DRUG USE FOR UNKNOWN INDICATION
     Dosage: 10 MG (10 MG, 1 D) ORAL
     Route: 048
  8. MOPRAL                   (OMEPRAZOLE) [Concomitant]
  9. FORLAX                (MACROGOL) [Concomitant]
  10. EFFERALFAN (PARACETAMOL) [Concomitant]

REACTIONS (8)
  - CEREBRAL HAEMATOMA [None]
  - DISORIENTATION [None]
  - FALL [None]
  - HAEMATOMA [None]
  - HYPOKALAEMIA [None]
  - INTERNATIONAL NORMALISED RATIO INCREASED [None]
  - OEDEMA [None]
  - RENAL FAILURE [None]
